FAERS Safety Report 15285711 (Version 2)
Quarter: 2019Q1

REPORT INFORMATION
  Report Type: Spontaneous
  Country: US (occurrence: US)
  Receive Date: 20180816
  Receipt Date: 20190123
  Transmission Date: 20190417
  Serious: No
  Sender: FDA-Public Use
  Company Number: PHEH2018US032730

PATIENT
  Sex: Female

DRUGS (1)
  1. BETAMETHASONE DIPROPIONATE. [Suspect]
     Active Substance: BETAMETHASONE DIPROPIONATE
     Indication: PRODUCT USED FOR UNKNOWN INDICATION
     Dosage: 45 G, QD
     Route: 061

REACTIONS (4)
  - Feeling abnormal [Unknown]
  - Rash [Unknown]
  - Hypersensitivity [Unknown]
  - Drug effect delayed [Unknown]
